FAERS Safety Report 10596581 (Version 7)
Quarter: 2015Q3

REPORT INFORMATION
  Report Type: Report from Study
  Country: CA (occurrence: CA)
  Receive Date: 20141120
  Receipt Date: 20150918
  Transmission Date: 20151125
  Serious: Yes (Hospitalization, Other)
  Sender: FDA-Public Use
  Company Number: CA-INCYTE CORPORATION-2013IN002571

PATIENT
  Age: 76 Year
  Sex: Female

DRUGS (11)
  1. VITAMIN A + D [Concomitant]
     Route: 065
  2. JAKAFI [Suspect]
     Active Substance: RUXOLITINIB
     Dosage: 20 MG, BID
     Route: 048
     Dates: start: 20140517
  3. VITAMIIN C [Concomitant]
     Active Substance: ASCORBIC ACID
     Route: 065
  4. VITAMIIN C [Concomitant]
     Active Substance: ASCORBIC ACID
     Route: 065
  5. VITAMIN A + D [Concomitant]
     Route: 065
  6. JAKAFI [Suspect]
     Active Substance: RUXOLITINIB
     Indication: MYELOFIBROSIS
     Dosage: 15 MG, BID
     Route: 048
     Dates: start: 20130919
  7. VITAMIIN C [Concomitant]
     Active Substance: ASCORBIC ACID
     Indication: PRODUCT USED FOR UNKNOWN INDICATION
     Dosage: UNK
  8. VITAMIN A + D [Concomitant]
     Indication: PRODUCT USED FOR UNKNOWN INDICATION
     Dosage: UNK
  9. QUININE [Concomitant]
     Active Substance: QUININE
     Indication: PRODUCT USED FOR UNKNOWN INDICATION
     Route: 065
  10. QUININE [Concomitant]
     Active Substance: QUININE
     Route: 065
  11. QUININE [Concomitant]
     Active Substance: QUININE
     Route: 065

REACTIONS (20)
  - Oesophageal haemorrhage [Unknown]
  - Anaemia [Unknown]
  - Hepatitis C [Unknown]
  - Headache [Recovering/Resolving]
  - Hernia [Unknown]
  - Ascites [Unknown]
  - Abdominal distension [Unknown]
  - Discomfort [Unknown]
  - Pain [Unknown]
  - Diarrhoea [Unknown]
  - Night sweats [Recovering/Resolving]
  - Nausea [Unknown]
  - Abdominal discomfort [Unknown]
  - Muscle spasms [Unknown]
  - Dyspnoea [Unknown]
  - Arthralgia [Unknown]
  - Flatulence [Unknown]
  - Cough [Unknown]
  - Splenomegaly [Unknown]
  - Migraine [Unknown]

NARRATIVE: CASE EVENT DATE: 20140517
